FAERS Safety Report 24727753 (Version 2)
Quarter: 2025Q2

REPORT INFORMATION
  Report Type: Report from Study
  Country: US (occurrence: US)
  Receive Date: 20241212
  Receipt Date: 20250630
  Transmission Date: 20250716
  Serious: Yes (Life-Threatening, Hospitalization, Other)
  Sender: MERCK SHARP & DOHME LLC
  Company Number: US-009507513-2412USA003015

PATIENT
  Age: 76 Year
  Sex: Male

DRUGS (4)
  1. KEYTRUDA [Suspect]
     Active Substance: PEMBROLIZUMAB
     Indication: Lip and/or oral cavity cancer
     Dosage: DOSE DESCRIPTION : EVERY 3 WEEKS
     Route: 042
     Dates: start: 202406
  2. KEYTRUDA [Suspect]
     Active Substance: PEMBROLIZUMAB
     Indication: Lip and/or oral cavity cancer
     Dates: end: 20250516
  3. OXYCODONE [Concomitant]
     Active Substance: OXYCODONE
  4. GABAPENTIN [Concomitant]
     Active Substance: GABAPENTIN

REACTIONS (5)
  - Mouth haemorrhage [Not Recovered/Not Resolved]
  - Ill-defined disorder [Unknown]
  - Oral pain [Not Recovered/Not Resolved]
  - Hypotension [Not Recovered/Not Resolved]
  - Thrombosis [Not Recovered/Not Resolved]

NARRATIVE: CASE EVENT DATE: 20240601
